FAERS Safety Report 9664122 (Version 1)
Quarter: 2013Q4

REPORT INFORMATION
  Report Type: Report from Study
  Country: MX (occurrence: MX)
  Receive Date: 20131101
  Receipt Date: 20131101
  Transmission Date: 20140711
  Serious: Yes (Other)
  Sender: FDA-Public Use
  Company Number: MX-SA-2013SA109202

PATIENT
  Age: 64 Year
  Sex: Female

DRUGS (2)
  1. APROVEL [Suspect]
     Indication: HYPERTENSION
     Route: 048
     Dates: start: 2007, end: 20130929
  2. ARCOXIA [Concomitant]
     Indication: OSTEOARTHRITIS
     Dosage: STRENGTH: 90 MG
     Route: 048

REACTIONS (3)
  - Hypertension [Not Recovered/Not Resolved]
  - Inappropriate schedule of drug administration [Unknown]
  - Type 2 diabetes mellitus [Unknown]
